FAERS Safety Report 8188194-6 (Version None)
Quarter: 2012Q1

REPORT INFORMATION
  Report Type: 
  Country: None (occurrence: None)
  Receive Date: 20120221
  Receipt Date: 20111028
  Transmission Date: 20120608
  Serious: Yes (Other)
  Sender: FDA-Public Use
  Company Number: PHEH2011US08138

PATIENT
  Age: 12 Year
  Sex: Male

DRUGS (10)
  1. ZYRTEC [Concomitant]
  2. COLI [Concomitant]
  3. AZITHROMYCIN [Concomitant]
  4. PULMOZYME [Concomitant]
  5. PANCRELIPASE (PANCRELIPASE) [Concomitant]
  6. ADVAIR HFA [Concomitant]
  7. TOBI [Suspect]
  8. FLONASE [Concomitant]
  9. ALBUTEROL [Concomitant]
  10. SODIUM CHLORIDE [Concomitant]

REACTIONS (1)
  - PULMONARY FUNCTION TEST DECREASED [None]
